FAERS Safety Report 5985873-3 (Version None)
Quarter: 2008Q4

REPORT INFORMATION
  Report Type: 
  Country: None (occurrence: None)
  Receive Date: 20081209
  Receipt Date: 20081201
  Transmission Date: 20090506
  Serious: Yes (Hospitalization)
  Sender: FDA-Public Use
  Company Number: GB-RANBAXY-2008RR-19382

PATIENT
  Age: 50 Year
  Sex: Male
  Weight: 65 kg

DRUGS (4)
  1. DOXYCYCLINE [Suspect]
     Indication: PROSTATITIS
     Dosage: UNK
     Route: 048
     Dates: start: 20081020, end: 20081102
  2. TRIMETHOPRIM [Suspect]
     Indication: PROSTATITIS
     Dosage: UNK
     Route: 048
     Dates: start: 20081020, end: 20081102
  3. DICLOFENAC SODIUM [Concomitant]
     Indication: ANKYLOSING SPONDYLITIS
     Dosage: 50 MG, PRN
     Route: 048
  4. TAMSULOSIN HCL [Concomitant]
     Indication: BENIGN PROSTATIC HYPERPLASIA
     Dosage: 400 UG, UNK
     Route: 048
     Dates: start: 20080501

REACTIONS (7)
  - EYE PAIN [None]
  - INFLAMMATION [None]
  - OROPHARYNGEAL PAIN [None]
  - PRURITUS [None]
  - RHINORRHOEA [None]
  - SWOLLEN TONGUE [None]
  - URTICARIA [None]
